FAERS Safety Report 4284908-6 (Version None)
Quarter: 2004Q1

REPORT INFORMATION
  Report Type: 
  Country: None (occurrence: None)
  Receive Date: 20040203
  Receipt Date: 20040203
  Transmission Date: 20041129
  Serious: Yes (Other)
  Sender: FDA-Public Use
  Company Number: None

PATIENT
  Sex: Male
  Weight: 83.9154 kg

DRUGS (1)
  1. PRAVACHOL [Suspect]
     Indication: GLOBAL AMNESIA
     Dosage: 40 MG DAY ORAL
     Route: 048

REACTIONS (1)
  - AMNESIA [None]
